FAERS Safety Report 9816239 (Version 1)
Quarter: 2014Q1

REPORT INFORMATION
  Report Type: Report from Study
  Country: ES (occurrence: ES)
  Receive Date: 20140114
  Receipt Date: 20140114
  Transmission Date: 20141002
  Serious: Yes (Life-Threatening, Hospitalization)
  Sender: FDA-Public Use
  Company Number: PHHY2014ES003011

PATIENT
  Age: 64 Year
  Sex: Male

DRUGS (3)
  1. EXTAVIA [Suspect]
     Indication: MULTIPLE SCLEROSIS
     Dosage: 1 ML, UNK
     Route: 058
     Dates: start: 20130109
  2. OMEPRAZOLE [Concomitant]
     Dosage: UNK UKN, UNK
  3. ANTIBIOTICS [Concomitant]
     Dosage: UNK UKN, UNK

REACTIONS (2)
  - Near drowning [Unknown]
  - Cardiac arrest [Recovered/Resolved]
